FAERS Safety Report 16767112 (Version 1)
Quarter: 2019Q3

REPORT INFORMATION
  Report Type: Spontaneous
  Country: GB (occurrence: GB)
  Receive Date: 20190903
  Receipt Date: 20190903
  Transmission Date: 20191005
  Serious: Yes (Other)
  Sender: FDA-Public Use
  Company Number: GB-MYLANLABS-2019M1081692

PATIENT
  Age: 77 Year
  Sex: Male
  Weight: 110 kg

DRUGS (3)
  1. CANDESARTAN. [Suspect]
     Active Substance: CANDESARTAN
     Indication: PRODUCT USED FOR UNKNOWN INDICATION
     Dosage: 16 + 8 MG
  2. AMOXICILLIN. [Interacting]
     Active Substance: AMOXICILLIN
     Indication: LUNG INFECTION
     Dosage: 1500 MILLIGRAM, QD
     Route: 048
     Dates: start: 20190305, end: 20190312
  3. GANFORT [Concomitant]
     Active Substance: BIMATOPROST\TIMOLOL
     Dosage: UNK

REACTIONS (2)
  - Cough [Recovered/Resolved]
  - Drug interaction [Unknown]

NARRATIVE: CASE EVENT DATE: 20190307
